FAERS Safety Report 6925117-9 (Version None)
Quarter: 2010Q3

REPORT INFORMATION
  Report Type: 
  Country: None (occurrence: None)
  Receive Date: 20100816
  Receipt Date: 20100809
  Transmission Date: 20110219
  Serious: Yes (Hospitalization, Other)
  Sender: FDA-Public Use
  Company Number: BR-SANOFI-AVENTIS-2010SA047459

PATIENT
  Age: 75 Year
  Sex: Female
  Weight: 60 kg

DRUGS (6)
  1. LANTUS [Suspect]
     Indication: TYPE 2 DIABETES MELLITUS
     Route: 058
     Dates: end: 20100809
  2. LANTUS [Suspect]
     Route: 058
     Dates: start: 20100809
  3. OPTIPEN [Suspect]
  4. ALL OTHER THERAPEUTIC PRODUCTS [Concomitant]
     Indication: HYPERTENSION
  5. ALL OTHER THERAPEUTIC PRODUCTS [Concomitant]
  6. ALL OTHER THERAPEUTIC PRODUCTS [Concomitant]
     Indication: DEPRESSION
     Route: 048

REACTIONS (6)
  - DYSKINESIA [None]
  - DYSPHAGIA [None]
  - FEELING ABNORMAL [None]
  - HYPOGLYCAEMIC UNCONSCIOUSNESS [None]
  - SOMNOLENCE [None]
  - TIBIA FRACTURE [None]
